FAERS Safety Report 8266616-X (Version None)
Quarter: 2012Q2

REPORT INFORMATION
  Report Type: 
  Country: None (occurrence: None)
  Receive Date: 20120406
  Receipt Date: 20120319
  Transmission Date: 20120825
  Serious: Yes (Other)
  Sender: FDA-Public Use
  Company Number: FR-BAXTER-2012BAX000062

PATIENT
  Sex: Female

DRUGS (4)
  1. KIOVIG [Suspect]
     Dates: start: 20120305, end: 20120308
  2. KIOVIG [Suspect]
     Indication: DERMATOMYOSITIS
     Route: 042
     Dates: start: 20120206, end: 20120210
  3. KIOVIG [Suspect]
     Route: 042
     Dates: start: 20120206, end: 20120210
  4. KIOVIG [Suspect]
     Dosage: 3 VIALS
     Route: 042
     Dates: start: 20120305, end: 20120308

REACTIONS (1)
  - NEUTROPENIA [None]
